FAERS Safety Report 5684720-7 (Version None)
Quarter: 2008Q1

REPORT INFORMATION
  Report Type: 
  Country: None (occurrence: None)
  Receive Date: 20080328
  Receipt Date: 20070731
  Transmission Date: 20080703
  Serious: Yes (Other)
  Sender: FDA-Public Use
  Company Number: US-BRISTOL-MYERS SQUIBB COMPANY-13863329

PATIENT
  Age: 65 Year
  Sex: Female

DRUGS (3)
  1. ERBITUX [Suspect]
     Indication: COLORECTAL CANCER METASTATIC
     Dates: start: 20070731
  2. CIMETIDINE [Concomitant]
     Route: 042
     Dates: start: 20070731
  3. DEXAMETHASONE TAB [Concomitant]
     Route: 042
     Dates: start: 20070731

REACTIONS (4)
  - FLUSHING [None]
  - INFUSION RELATED REACTION [None]
  - PRURITUS [None]
  - SWOLLEN TONGUE [None]
